FAERS Safety Report 10068880 (Version 5)
Quarter: 2014Q2

REPORT INFORMATION
  Report Type: Report from Study
  Country: US (occurrence: US)
  Receive Date: 20140409
  Receipt Date: 20140630
  Transmission Date: 20141212
  Serious: Yes (Other)
  Sender: FDA-Public Use
  Company Number: US-JNJFOC-20140402660

PATIENT
  Age: 67 Year
  Sex: Female
  Weight: 83.92 kg

DRUGS (12)
  1. OLYSIO [Suspect]
     Indication: HEPATITIS C
     Route: 048
     Dates: start: 20140331, end: 20140401
  2. SOVALDI [Suspect]
     Indication: HEPATITIS C
     Route: 048
     Dates: start: 20140331, end: 20140402
  3. PREVACID [Concomitant]
     Indication: GASTROOESOPHAGEAL REFLUX DISEASE
     Route: 048
     Dates: start: 2004
  4. METFORMIN [Concomitant]
     Indication: TYPE 2 DIABETES MELLITUS
     Route: 048
     Dates: start: 2011
  5. LISINOPRIL [Concomitant]
     Indication: BLOOD PRESSURE
     Route: 048
     Dates: start: 2010
  6. HYDROCHLOROTHIAZIDE [Concomitant]
     Indication: DIURETIC THERAPY
     Route: 048
     Dates: start: 2011
  7. SPIRONOLACTONE [Concomitant]
     Indication: DIURETIC THERAPY
     Route: 048
     Dates: start: 2011
  8. MULTIVITAMIN TABLET [Concomitant]
     Indication: VITAMIN SUPPLEMENTATION
     Dosage: STARTED ^MANY YEARS AGO^
     Route: 048
  9. ASPIRIN [Concomitant]
     Indication: GENERAL PHYSICAL CONDITION
     Dosage: STARTED ^AT LEAST 20 YEARS AGO^.
     Route: 048
  10. ASPIRIN [Concomitant]
     Indication: ANTIINFLAMMATORY THERAPY
     Dosage: STARTED ^AT LEAST 20 YEARS AGO^.
     Route: 048
  11. OMEGA 3 [Concomitant]
     Indication: NUTRITIONAL SUPPLEMENTATION
     Route: 065
  12. CENTRUM MULTIVITAMINS [Concomitant]
     Indication: VITAMIN SUPPLEMENTATION
     Route: 065

REACTIONS (12)
  - Angioedema [Recovered/Resolved]
  - Dysphagia [Recovered/Resolved]
  - Swollen tongue [Recovered/Resolved]
  - Tongue discolouration [Recovered/Resolved]
  - Paraesthesia oral [Recovered/Resolved]
  - Tongue movement disturbance [Recovered/Resolved]
  - Dyspnoea [Recovered/Resolved]
  - Jaw disorder [Recovered/Resolved]
  - Pharyngeal oedema [Recovered/Resolved]
  - Lip swelling [Recovered/Resolved]
  - Drug hypersensitivity [Recovered/Resolved]
  - Off label use [Recovered/Resolved]
